FAERS Safety Report 8266432-9 (Version None)
Quarter: 2012Q2

REPORT INFORMATION
  Report Type: 
  Country: None (occurrence: None)
  Receive Date: 20120406
  Receipt Date: 20120328
  Transmission Date: 20120825
  Serious: Yes (Hospitalization)
  Sender: FDA-Public Use
  Company Number: US-ASTRAZENECA-2011SE57607

PATIENT
  Age: 38 Year
  Sex: Female
  Weight: 108.9 kg

DRUGS (24)
  1. SEROQUEL XR [Suspect]
     Indication: DEPRESSION
     Route: 048
  2. SEROQUEL XR [Suspect]
     Route: 048
     Dates: start: 20080101
  3. VALIUM [Concomitant]
     Indication: ANXIETY
  4. PRIMIDONE [Concomitant]
     Indication: TREMOR
  5. TRAZODONE HCL [Concomitant]
     Indication: ANTIDEPRESSANT THERAPY
  6. LOVAZAR [Concomitant]
     Indication: BLOOD CHOLESTEROL ABNORMAL
  7. ZOCOR [Concomitant]
     Indication: BLOOD CHOLESTEROL ABNORMAL
  8. PRILOSEC [Suspect]
     Indication: GASTROOESOPHAGEAL REFLUX DISEASE
     Route: 048
  9. SEROQUEL XR [Suspect]
     Indication: AFFECTIVE DISORDER
     Route: 048
  10. ZOLOFT [Concomitant]
     Indication: ANXIETY
  11. SEROQUEL XR [Suspect]
     Route: 048
     Dates: start: 20080101
  12. PRILOSEC [Suspect]
     Dosage: 20 MG OR 40 MG ONCE IN THE MORNING
     Route: 048
  13. SEROQUEL XR [Suspect]
     Indication: BIPOLAR DISORDER
     Route: 048
  14. SUDAFED 12 HOUR [Concomitant]
  15. IMDUROL [Concomitant]
     Indication: ANXIETY
  16. ULTRACET [Concomitant]
  17. ATARAX [Concomitant]
     Indication: ANXIETY
  18. SEROQUEL XR [Suspect]
     Route: 048
     Dates: start: 20080101
  19. CYMBALTA [Concomitant]
     Indication: DEPRESSION
  20. LIBRAX [Concomitant]
     Indication: GASTRIC DISORDER
     Dosage: AS REQUIRED
  21. SEROQUEL XR [Suspect]
     Route: 048
     Dates: start: 20080101
  22. TRICOR [Concomitant]
     Indication: BLOOD TRIGLYCERIDES ABNORMAL
     Dosage: 145 DAILY
  23. SEROQUEL XR [Suspect]
     Indication: ANXIETY
     Route: 048
  24. ROBITUSSIN CF [Concomitant]

REACTIONS (9)
  - PANCREATITIS [None]
  - COUGH [None]
  - GASTROENTERITIS VIRAL [None]
  - DRUG INEFFECTIVE FOR UNAPPROVED INDICATION [None]
  - SINUSITIS [None]
  - BURNING SENSATION [None]
  - NASOPHARYNGITIS [None]
  - ANXIETY [None]
  - TACHYPHRENIA [None]
